FAERS Safety Report 6771617-4 (Version None)
Quarter: 2010Q2

REPORT INFORMATION
  Report Type: 
  Country: None (occurrence: None)
  Receive Date: 20100616
  Receipt Date: 20100604
  Transmission Date: 20101027
  Serious: Yes (Other)
  Sender: FDA-Public Use
  Company Number: PHHY2010BR36663

PATIENT
  Age: 34 Year
  Sex: Male

DRUGS (1)
  1. SANDOSTATIN LAR [Suspect]
     Dosage: 20 MG, UNK

REACTIONS (7)
  - BLOOD THYROID STIMULATING HORMONE INCREASED [None]
  - DRUG DOSE OMISSION [None]
  - HAND DEFORMITY [None]
  - HEADACHE [None]
  - HYPERTHYROIDISM [None]
  - PANIC DISORDER [None]
  - VISUAL IMPAIRMENT [None]
